FAERS Safety Report 18898721 (Version 2)
Quarter: 2021Q1

REPORT INFORMATION
  Report Type: Report from Study
  Country: GB (occurrence: GB)
  Receive Date: 20210216
  Receipt Date: 20210308
  Transmission Date: 20210420
  Serious: Yes (Other)
  Sender: FDA-Public Use
  Company Number: NVSC2021GB035066

PATIENT
  Sex: Male

DRUGS (2)
  1. ADRENALINE [Suspect]
     Active Substance: EPINEPHRINE
     Indication: PRODUCT USED FOR UNKNOWN INDICATION
     Route: 065
  2. COSENTYX [Suspect]
     Active Substance: SECUKINUMAB
     Indication: ANKYLOSING SPONDYLITIS
     Dosage: 150 MG, Q4W
     Route: 065
     Dates: start: 20180612

REACTIONS (4)
  - Toothache [Unknown]
  - Tooth abscess [Unknown]
  - Tremor [Unknown]
  - Body temperature increased [Unknown]
